FAERS Safety Report 4525019-1 (Version None)
Quarter: 2004Q4

REPORT INFORMATION
  Report Type: 
  Country: None (occurrence: None)
  Receive Date: 20041208
  Receipt Date: 20041130
  Transmission Date: 20050328
  Serious: Yes (Disabling, Other)
  Sender: FDA-Public Use
  Company Number: 2004101548

PATIENT
  Age: 74 Year
  Sex: Female
  Weight: 61.2356 kg

DRUGS (6)
  1. LIPITOR [Suspect]
     Indication: BLOOD CHOLESTEROL INCREASED
     Dosage: 40 MG (1 IN 1 D), ORAL
     Route: 048
     Dates: start: 19990120
  2. CELEBREX [Suspect]
     Indication: ARTHRITIS
     Dosage: 200 MG (200 MG 1 IN 1 D) ORAL
     Route: 048
     Dates: start: 20041101
  3. LEVOTHYROXINE SODIUM [Concomitant]
  4. CENTRUM SILVER (ASCORBIC ACID, CALCIUM, MINERALS NOS, RETINOL, TOCOPHE [Concomitant]
  5. CYANOCOBALAMIN [Concomitant]
  6. ACETYLSALICYLIC ACID [Concomitant]

REACTIONS (5)
  - ABASIA [None]
  - BLOOD CHOLESTEROL INCREASED [None]
  - DIFFICULTY IN WALKING [None]
  - INADEQUATE ANALGESIA [None]
  - PAIN [None]
